FAERS Safety Report 5286087-5 (Version None)
Quarter: 2007Q1

REPORT INFORMATION
  Report Type: 
  Country: None (occurrence: None)
  Receive Date: 20070329
  Receipt Date: 20070314
  Transmission Date: 20070707
  Serious: Yes (Death, Hospitalization)
  Sender: FDA-Public Use
  Company Number: 237496

PATIENT
  Age: 77 Year
  Sex: Male
  Weight: 95.7 kg

DRUGS (11)
  1. AVASTIN [Suspect]
     Indication: COLORECTAL CANCER METASTATIC
     Dosage: 5 MG/KG, Q2W, INTRAVENOUS
     Route: 042
     Dates: start: 20070129
  2. CAPECITABINE (CAPECITABINE) [Suspect]
     Indication: COLORECTAL CANCER METASTATIC
     Dosage: 1500 MG/M2, ORAL
     Route: 048
     Dates: start: 20070129
  3. VYTORIN [Concomitant]
  4. METFORMIN HCL [Concomitant]
  5. ASPIRIN [Concomitant]
  6. BENADRYL (DIPHENHDRAMINE HYDROCHLORIDE) [Concomitant]
  7. LOMOTIL [Concomitant]
  8. CELEBREX [Concomitant]
  9. TRIAMTERENE (TRIAMTERENE) [Concomitant]
  10. METOPROLOL TARTRATE [Concomitant]
  11. OXALIPLATIN [Suspect]
     Indication: COLORECTAL CANCER METASTATIC
     Dosage: 85 MG/M2, Q2W, INTRAVENOUS
     Route: 042
     Dates: start: 20070129

REACTIONS (6)
  - ATRIAL FIBRILLATION [None]
  - DEPRESSED LEVEL OF CONSCIOUSNESS [None]
  - LETHARGY [None]
  - MENTAL STATUS CHANGES [None]
  - METABOLIC ACIDOSIS [None]
  - SHOCK [None]
